FAERS Safety Report 5010936-9 (Version None)
Quarter: 2006Q2

REPORT INFORMATION
  Report Type: 
  Country: None (occurrence: None)
  Receive Date: 20060525
  Receipt Date: 20060518
  Transmission Date: 20061013
  Serious: Yes (Hospitalization)
  Sender: FDA-Public Use
  Company Number: GB-AVENTIS-200615433GDDC

PATIENT
  Age: 45 Year
  Sex: Female
  Weight: 47 kg

DRUGS (6)
  1. METRONIDAZOLE [Suspect]
     Indication: VAGINAL DISCHARGE
     Route: 048
     Dates: start: 20060508, end: 20060510
  2. CIPROFLOXACIN [Suspect]
     Indication: VAGINAL DISCHARGE
     Route: 048
     Dates: start: 20060504, end: 20060510
  3. MIZOLASTINE [Concomitant]
     Indication: SEASONAL ALLERGY
     Route: 048
     Dates: start: 20060425
  4. LANSOPRAZOLE [Concomitant]
     Indication: ABDOMINAL PAIN UPPER
     Route: 048
     Dates: start: 20000912
  5. SENNA [Concomitant]
     Indication: CONSTIPATION
     Dosage: DOSE: 2 NOCTE
     Route: 048
     Dates: start: 20000425
  6. METOCLOPRAMIDE [Concomitant]
     Indication: NAUSEA
     Route: 048
     Dates: start: 20001018

REACTIONS (3)
  - ABDOMINAL PAIN UPPER [None]
  - GASTRITIS [None]
  - NAUSEA [None]
